FAERS Safety Report 20940647 (Version 1)
Quarter: 2022Q2

REPORT INFORMATION
  Report Type: Other
  Country: US (occurrence: US)
  Receive Date: 20220609
  Receipt Date: 20220609
  Transmission Date: 20220721
  Serious: No
  Sender: FDA-Public Use
  Company Number: US-INTERCEPT-PM2020002177

PATIENT
  Sex: Female

DRUGS (2)
  1. OCALIVA [Suspect]
     Active Substance: OBETICHOLIC ACID
     Dosage: 5 MILLIGRAM, QD
     Route: 048
     Dates: start: 20180914
  2. URSODIOL [Concomitant]
     Active Substance: URSODIOL
     Dosage: 300 MG, TID
     Dates: start: 2015

REACTIONS (1)
  - No adverse event [Unknown]
